FAERS Safety Report 10573082 (Version 1)
Quarter: 2014Q4

REPORT INFORMATION
  Report Type: Spontaneous
  Country: None (occurrence: None)
  Receive Date: 20141106
  Receipt Date: 20141106
  Transmission Date: 20150529
  Serious: Yes (Congenital Anomaly)
  Sender: FDA-Public Use
  Company Number: IMP_08029_2014

PATIENT
  Sex: Male
  Weight: 2.8 kg

DRUGS (2)
  1. PHENOBARBITAL. [Concomitant]
     Active Substance: PHENOBARBITAL
  2. DIVALPROEX SODIUM. [Suspect]
     Active Substance: DIVALPROEX SODIUM
     Indication: MATERNAL EXPOSURE DURING PREGNANCY
     Route: 064

REACTIONS (6)
  - Toxicity to various agents [None]
  - Foetal anticonvulsant syndrome [None]
  - Speech disorder developmental [None]
  - Maternal drugs affecting foetus [None]
  - Bone deformity [None]
  - Foot deformity [None]
